FAERS Safety Report 10497693 (Version 1)
Quarter: 2014Q4

REPORT INFORMATION
  Report Type: Spontaneous
  Country: US (occurrence: None)
  Receive Date: 20141003
  Receipt Date: 20141003
  Transmission Date: 20150528
  Serious: Yes (Death)
  Sender: FDA-Public Use
  Company Number: None

PATIENT
  Age: 57 Year
  Sex: Male
  Weight: 92.5 kg

DRUGS (2)
  1. CYTARABINE. [Suspect]
     Active Substance: CYTARABINE
     Dates: end: 20140319
  2. DAUNORUBICIN [Suspect]
     Active Substance: DAUNORUBICIN
     Dosage: ALL THREE DAUNO DOSES WERE REDUCED PER PROTOCOL TO DOSE LEVEL 1 DUE TO HEPATOTOXICITY (22.5 MG/M2/DAY)
     Dates: end: 20140314

REACTIONS (2)
  - Infection [None]
  - Acute respiratory failure [None]

NARRATIVE: CASE EVENT DATE: 20140407
